FAERS Safety Report 6042953-4 (Version None)
Quarter: 2009Q1

REPORT INFORMATION
  Report Type: 
  Country: None (occurrence: None)
  Receive Date: 20090119
  Receipt Date: 20090113
  Transmission Date: 20090719
  Serious: Yes (Hospitalization)
  Sender: FDA-Public Use
  Company Number: US-JNJFOC-20090102345

PATIENT
  Age: 67 Year
  Sex: Female

DRUGS (5)
  1. HALOPERIDOL [Suspect]
     Indication: AGITATION
     Route: 065
  2. SELEGILINE HCL [Interacting]
     Indication: PARKINSON'S DISEASE
     Route: 065
  3. ARTANE [Interacting]
     Indication: PARKINSON'S DISEASE
     Route: 065
  4. ATIVAN [Interacting]
     Indication: AGITATION
     Route: 065
  5. PROZAC [Interacting]
     Indication: DEPRESSION
     Route: 065

REACTIONS (2)
  - DEMENTIA [None]
  - DRUG INTERACTION [None]
